FAERS Safety Report 8583020 (Version 7)
Quarter: 2014Q1

REPORT INFORMATION
  Report Type: Spontaneous
  Country: GB (occurrence: GB)
  Receive Date: 20120529
  Receipt Date: 20140203
  Transmission Date: 20141002
  Serious: Yes (Death, Other)
  Sender: FDA-Public Use
  Company Number: PHHY2012GB044934

PATIENT
  Age: 40 Year
  Sex: Male
  Weight: 104 kg

DRUGS (23)
  1. CLARITHROMYCIN [Suspect]
     Indication: LOWER RESPIRATORY TRACT INFECTION
     Dosage: 500 MG, BID
     Route: 048
     Dates: start: 20111025
  2. CLARITHROMYCIN [Interacting]
     Indication: PHARYNGITIS
  3. HUMIRA [Suspect]
     Indication: CROHN^S DISEASE
     Dosage: 160 MG, BIW
     Route: 058
     Dates: start: 20111005
  4. HUMIRA [Suspect]
     Dosage: 40 MG
     Route: 030
     Dates: start: 20111005
  5. HUMIRA [Suspect]
     Dosage: 80 MG, BIW
     Route: 058
     Dates: start: 20111027
  6. METHADONE [Interacting]
     Indication: ABDOMINAL PAIN
     Dosage: 45 UNK, UNK
     Route: 048
  7. METHADONE [Interacting]
     Indication: CROHN^S DISEASE
     Dosage: 35 MG, BID
     Route: 048
     Dates: start: 20111025
  8. ADCAL-D3 [Concomitant]
     Indication: CROHN^S DISEASE
     Dosage: 1 DF, BID
     Route: 048
     Dates: start: 20110808
  9. ADCAL-D3 [Concomitant]
     Indication: BONE DISORDER
  10. DIAZEPAM [Concomitant]
     Indication: ANXIETY
     Dosage: 2 MG
     Route: 048
     Dates: start: 20111019
  11. DIAZEPAM [Concomitant]
     Dosage: UNK UKN, UNK
     Dates: start: 20111010
  12. LANSOPRAZOLE [Concomitant]
     Indication: GASTRITIS
     Dosage: 30 MG, QD
     Route: 048
     Dates: start: 20111019
  13. LANSOPRAZOLE [Concomitant]
     Indication: DYSPEPSIA
     Dosage: 30 MG, QD
  14. LANSOPRAZOLE [Concomitant]
     Dosage: UNK UKN, UNK
     Dates: start: 20070219
  15. MULTIVITAMINS [Concomitant]
  16. VENTOLIN [Concomitant]
     Dosage: 100 UG, UNK
  17. ORAMORPH [Concomitant]
     Indication: PAIN
     Dosage: 100 MG, QD
     Route: 048
     Dates: start: 201102, end: 20111025
  18. ORAMORPH [Concomitant]
     Indication: CROHN^S DISEASE
  19. ASCORBIC ACID [Concomitant]
     Dates: start: 20111006
  20. HYDROXOCOBALAMIN [Concomitant]
     Indication: VITAMIN D DEFICIENCY
     Dosage: 1 DF, UNK
     Dates: end: 20110823
  21. MST CONTINUS [Concomitant]
     Indication: PAIN
     Dosage: 20 MG, QD
     Route: 048
     Dates: end: 20110818
  22. NUTRITION SUPPLEMENTS [Concomitant]
     Indication: NUTRITIONAL SUPPLEMENTATION
     Dosage: 1 DF, UNK
     Route: 048
     Dates: start: 20110105
  23. PARACETAMOL [Concomitant]
     Indication: PAIN
     Dosage: 1 G, UNK

REACTIONS (39)
  - Diffuse alveolar damage [Fatal]
  - Pulmonary congestion [Fatal]
  - Pulmonary oedema [Fatal]
  - Chest pain [Fatal]
  - Crohn^s disease [Fatal]
  - Inflammatory marker increased [Fatal]
  - Rectal haemorrhage [Fatal]
  - Vomiting [Fatal]
  - Toxicity to various agents [Fatal]
  - Hyperhidrosis [Fatal]
  - Tremor [Fatal]
  - Somnolence [Fatal]
  - Dysarthria [Fatal]
  - Heart rate increased [Fatal]
  - Inhibitory drug interaction [Fatal]
  - Cardiac hypertrophy [Unknown]
  - Blood urine [Unknown]
  - Aggression [Fatal]
  - Vision blurred [Fatal]
  - Confusional state [Fatal]
  - Diplopia [Fatal]
  - Immunosuppression [Unknown]
  - Infection [Unknown]
  - Pyrexia [Unknown]
  - Hepatic steatosis [Unknown]
  - Hepatomegaly [Unknown]
  - Splenomegaly [Unknown]
  - Hiccups [Unknown]
  - Pharyngeal erythema [Unknown]
  - Oropharyngeal pain [Unknown]
  - Pain [Unknown]
  - Dysuria [Unknown]
  - Pneumonitis [Unknown]
  - Influenza [Unknown]
  - Dizziness [Unknown]
  - Malaise [Unknown]
  - Headache [Unknown]
  - Erythema [Unknown]
  - White blood cell count decreased [Unknown]
